FAERS Safety Report 13886494 (Version 1)
Quarter: 2017Q3

REPORT INFORMATION
  Report Type: Spontaneous
  Country: US (occurrence: US)
  Receive Date: 20170821
  Receipt Date: 20170821
  Transmission Date: 20171127
  Serious: No
  Sender: FDA-Public Use
  Company Number: US-ALLERGAN-1721224US

PATIENT
  Age: 44 Year
  Sex: Male

DRUGS (5)
  1. ANDRODERM [Suspect]
     Active Substance: TESTOSTERONE
     Dosage: 4 MG, UNK
     Route: 062
     Dates: start: 2016
  2. XANAX [Concomitant]
     Active Substance: ALPRAZOLAM
     Indication: BACK DISORDER
     Dosage: .125 OR .25 MG
     Route: 065
  3. ANDRODERM [Suspect]
     Active Substance: TESTOSTERONE
     Indication: ANDROGEN REPLACEMENT THERAPY
     Dosage: 6 MG, UNK
     Route: 062
     Dates: start: 2016
  4. PREVACID [Concomitant]
     Active Substance: LANSOPRAZOLE
     Indication: PRODUCT USED FOR UNKNOWN INDICATION
     Route: 065
  5. ANDRODERM [Suspect]
     Active Substance: TESTOSTERONE
     Dosage: 4 MG, UNK
     Route: 062
     Dates: start: 2016

REACTIONS (6)
  - Application site burn [Unknown]
  - Wrong technique in product usage process [Unknown]
  - Administration site induration [Recovered/Resolved]
  - Application site haemorrhage [Unknown]
  - Application site vesicles [Recovered/Resolved]
  - Gastrooesophageal reflux disease [Not Recovered/Not Resolved]
